FAERS Safety Report 5299986-5 (Version None)
Quarter: 2007Q2

REPORT INFORMATION
  Report Type: 
  Country: None (occurrence: None)
  Receive Date: 20070417
  Receipt Date: 20070406
  Transmission Date: 20071010
  Serious: Yes (Hospitalization, Disabling, Other)
  Sender: FDA-Public Use
  Company Number: FR-PFIZER INC-2007014658

PATIENT
  Sex: Female
  Weight: 44 kg

DRUGS (2)
  1. CHAMPIX [Suspect]
     Indication: EX-SMOKER
     Dosage: TEXT:1 DOSE FORM
     Route: 048
     Dates: start: 20070219, end: 20070223
  2. ZYBAN [Concomitant]
     Indication: EX-SMOKER
     Route: 048
     Dates: start: 20070129, end: 20070201

REACTIONS (13)
  - ABNORMAL DREAMS [None]
  - AFFECTIVE DISORDER [None]
  - COGNITIVE DISORDER [None]
  - CONFUSIONAL STATE [None]
  - CRYING [None]
  - FEAR [None]
  - HALLUCINATION, AUDITORY [None]
  - HYPERACUSIS [None]
  - INSOMNIA [None]
  - MENSTRUAL DISORDER [None]
  - PANIC ATTACK [None]
  - PROSTRATION [None]
  - TEMPERATURE INTOLERANCE [None]
